FAERS Safety Report 8567454-0 (Version None)
Quarter: 2012Q3

REPORT INFORMATION
  Report Type: 
  Country: None (occurrence: None)
  Receive Date: 20120803
  Receipt Date: 20120801
  Transmission Date: 20120928
  Serious: Yes (Other)
  Sender: FDA-Public Use
  Company Number: PHEH2012US003813

PATIENT
  Sex: Female

DRUGS (7)
  1. CELEXA [Concomitant]
  2. PROGESTOGENS [Concomitant]
  3. CLARITIN [Concomitant]
  4. STRATTERA [Concomitant]
  5. AFINITOR [Suspect]
     Indication: TUBEROUS SCLEROSIS
     Dosage: 5 MG, DAILY
     Route: 048
     Dates: start: 20091209
  6. ZOLOFT [Concomitant]
  7. VIMPAT [Concomitant]

REACTIONS (1)
  - CONVULSION [None]
